FAERS Safety Report 8920173 (Version 2)
Quarter: 2012Q4

REPORT INFORMATION
  Report Type: Report from Study
  Country: US (occurrence: US)
  Receive Date: 20121122
  Receipt Date: 20121206
  Transmission Date: 20130627
  Serious: Yes (Hospitalization)
  Sender: FDA-Public Use
  Company Number: US-ROCHE-1153676

PATIENT

DRUGS (11)
  1. TRASTUZUMAB [Suspect]
     Indication: BREAST CANCER
     Route: 065
     Dates: start: 20120515, end: 20121016
  2. PERTUZUMAB [Suspect]
     Indication: BREAST CANCER
     Route: 065
     Dates: start: 20120515, end: 20121016
  3. PACLITAXEL [Suspect]
     Indication: BREAST CANCER
     Route: 065
     Dates: start: 20120515, end: 20121031
  4. CALCIUM CARBONATE/VITAMIN D NOS [Concomitant]
     Route: 065
     Dates: start: 20120515
  5. CURCUMIN [Concomitant]
     Route: 065
     Dates: start: 20120815
  6. DIPROLENE [Concomitant]
     Route: 065
     Dates: start: 20121016
  7. FAMOTIDINE [Concomitant]
     Route: 065
     Dates: start: 20120815
  8. HYDROCORTISONE [Concomitant]
     Route: 065
     Dates: start: 20120815
  9. LORAZEPAM [Concomitant]
     Route: 065
     Dates: start: 20120515
  10. SUMATRIPTAN SUCCINATE [Concomitant]
     Route: 065
     Dates: start: 20120815
  11. VITAMIN B6 [Concomitant]
     Route: 065
     Dates: start: 20120815

REACTIONS (3)
  - Pericardial effusion [Unknown]
  - Dyspnoea [Unknown]
  - Pleural effusion [Unknown]
